FAERS Safety Report 7495762-3 (Version None)
Quarter: 2011Q2

REPORT INFORMATION
  Report Type: 
  Country: None (occurrence: None)
  Receive Date: 20110523
  Receipt Date: 20110512
  Transmission Date: 20111010
  Serious: Yes (Hospitalization)
  Sender: FDA-Public Use
  Company Number: MY-ELI_LILLY_AND_COMPANY-MY201105004095

PATIENT
  Age: 20 Year
  Sex: Female

DRUGS (1)
  1. ZYPREXA [Suspect]
     Indication: BRIEF PSYCHOTIC DISORDER, WITH POSTPARTUM ONSET
     Dosage: 5 MG, UNK

REACTIONS (5)
  - MUSCULOSKELETAL STIFFNESS [None]
  - PNEUMONIA [None]
  - PYREXIA [None]
  - NECK PAIN [None]
  - DEPRESSED LEVEL OF CONSCIOUSNESS [None]
